FAERS Safety Report 4907393-7 (Version None)
Quarter: 2006Q1

REPORT INFORMATION
  Report Type: 
  Country: None (occurrence: None)
  Receive Date: 20060208
  Receipt Date: 20060208
  Transmission Date: 20060701
  Serious: Yes (Other)
  Sender: FDA-Public Use
  Company Number: None

PATIENT
  Sex: Female
  Weight: 71.6683 kg

DRUGS (1)
  1. HUMIRA 40 MGS ABBOTT LABS [Suspect]
     Indication: RHEUMATOID ARTHRITIS
     Dosage: 40 MGS QOW SQ
     Route: 058
     Dates: start: 20030601, end: 20060130

REACTIONS (1)
  - RENAL MASS [None]
